FAERS Safety Report 8269489-4 (Version None)
Quarter: 2012Q2

REPORT INFORMATION
  Report Type: 
  Country: None (occurrence: None)
  Receive Date: 20120409
  Receipt Date: 20120305
  Transmission Date: 20120825
  Serious: Yes (Life-Threatening, Hospitalization, Other)
  Sender: FDA-Public Use
  Company Number: PHHY2012NO018628

PATIENT
  Sex: Female

DRUGS (7)
  1. NEORAL [Suspect]
     Indication: BEHCET'S SYNDROME
     Dosage: 100 MG, BID
     Route: 048
     Dates: start: 20081001, end: 20090925
  2. PREDNISOLONE [Concomitant]
     Indication: BEHCET'S SYNDROME
     Dosage: 5-10 MG/DAY
     Route: 048
     Dates: start: 20080414
  3. CALCIGRAN FORTE [Concomitant]
     Indication: BEHCET'S SYNDROME
     Dosage: 500 MG CALCIUM/400 ?G VITAMIN D
     Route: 048
     Dates: start: 20080301
  4. IMURAN [Suspect]
     Indication: BEHCET'S SYNDROME
     Dosage: 50 MG, BID
     Route: 048
     Dates: start: 20090925, end: 20111108
  5. PARALGIN FORTE [Concomitant]
     Indication: BEHCET'S SYNDROME
     Dosage: 400 MG PARACETAMOL/30 MG CODEINE
     Route: 048
     Dates: start: 20080414
  6. REMICADE [Suspect]
     Indication: BEHCET'S SYNDROME
     Dosage: 300 MG, UNK
     Route: 041
     Dates: start: 20100319, end: 20111108
  7. ALENDRONIC ACID [Concomitant]
     Indication: OSTEOPOROSIS
     Dosage: 70 MG, QW
     Route: 048
     Dates: start: 20100320

REACTIONS (7)
  - WEIGHT DECREASED [None]
  - ANAPLASTIC LARGE CELL LYMPHOMA T- AND NULL-CELL TYPES STAGE IV [None]
  - ABDOMINAL PAIN UPPER [None]
  - PLEURAL EFFUSION [None]
  - NIGHT SWEATS [None]
  - PYREXIA [None]
  - LUNG DISORDER [None]
